FAERS Safety Report 5499463-2 (Version None)
Quarter: 2007Q4

REPORT INFORMATION
  Report Type: 
  Country: None (occurrence: None)
  Receive Date: 20071026
  Receipt Date: 20071016
  Transmission Date: 20080405
  Serious: Yes (Hospitalization)
  Sender: FDA-Public Use
  Company Number: CA-ROCHE-523790

PATIENT
  Age: 55 Year
  Sex: Male
  Weight: 107 kg

DRUGS (12)
  1. PEG-INTERFERON ALFA 2A (RO 25-8310) [Suspect]
     Route: 058
     Dates: start: 20070203
  2. PEG-INTERFERON ALFA 2A (RO 25-8310) [Suspect]
     Route: 058
     Dates: start: 20070417
  3. PEG-INTERFERON ALFA 2A (RO 25-8310) [Suspect]
     Route: 058
     Dates: end: 20071015
  4. RIBAVIRIN [Suspect]
     Dosage: GIVEN AS SIX TABS TWICE DAILY.
     Route: 048
     Dates: start: 20070203, end: 20070218
  5. RIBAVIRIN [Suspect]
     Dosage: DOSE DECREASED TO TWO TABS TWICE DAILY.
     Route: 048
     Dates: start: 20070219
  6. RIBAVIRIN [Suspect]
     Route: 048
     Dates: end: 20071015
  7. ATACAND [Concomitant]
     Dates: start: 19970101
  8. HYDROCHLOROTHIAZIDE [Concomitant]
     Dates: start: 19970101
  9. GLYBURIDE [Concomitant]
     Dates: start: 19970101
  10. METFORMIN [Concomitant]
     Dates: start: 19970101
  11. CLONAZEPAM [Concomitant]
     Dates: start: 20000101
  12. TERAZOSIN HCL [Concomitant]
     Dates: start: 19980101

REACTIONS (1)
  - HEPATIC ENCEPHALOPATHY [None]
